FAERS Safety Report 6080033-2 (Version None)
Quarter: 2009Q1

REPORT INFORMATION
  Report Type: 
  Country: None (occurrence: None)
  Receive Date: 20090217
  Receipt Date: 20090210
  Transmission Date: 20090719
  Serious: Yes (Other)
  Sender: FDA-Public Use
  Company Number: AT-BRISTOL-MYERS SQUIBB COMPANY-14499461

PATIENT
  Age: 60 Year
  Sex: Female

DRUGS (3)
  1. IXABEPILONE [Suspect]
     Indication: BREAST CANCER
     Route: 042
     Dates: start: 20081020
  2. DIPHENHYDRAMINE HCL [Concomitant]
     Dates: start: 20081020
  3. RANITIDINE [Concomitant]
     Dates: start: 20081020

REACTIONS (1)
  - PLEURAL EFFUSION [None]
